FAERS Safety Report 18953473 (Version 1)
Quarter: 2021Q1

REPORT INFORMATION
  Report Type: Spontaneous
  Country: US (occurrence: US)
  Receive Date: 20210301
  Receipt Date: 20210301
  Transmission Date: 20210420
  Serious: Yes (Other)
  Sender: FDA-Public Use
  Company Number: None

PATIENT
  Age: 73 Year
  Sex: Female
  Weight: 133.65 kg

DRUGS (18)
  1. ONDANSETRON [Concomitant]
     Active Substance: ONDANSETRON
  2. ACETAMINOPHEN. [Concomitant]
     Active Substance: ACETAMINOPHEN
  3. HYDROCHLOROTHIAZIDE. [Concomitant]
     Active Substance: HYDROCHLOROTHIAZIDE
  4. PRAMIPEXOLE. [Concomitant]
     Active Substance: PRAMIPEXOLE
  5. LEVEMIR [Concomitant]
     Active Substance: INSULIN DETEMIR
  6. CYCLOBENZAPRINE. [Concomitant]
     Active Substance: CYCLOBENZAPRINE
  7. FUROSEMIDE. [Concomitant]
     Active Substance: FUROSEMIDE
  8. DEXCOM G6 SENSOR [Concomitant]
     Active Substance: DEVICE
  9. FENTANYL TRANSDERMAL SYSTEM [Suspect]
     Active Substance: FENTANYL
     Indication: PAIN
     Dosage: ?          OTHER STRENGTH:MCG;QUANTITY:10 PATCH(ES);OTHER FREQUENCY:EVERY 72 HOURS;?
     Route: 061
     Dates: start: 20210125, end: 20210226
  10. TEMAZEPAM. [Concomitant]
     Active Substance: TEMAZEPAM
  11. TRAMADOL. [Concomitant]
     Active Substance: TRAMADOL
  12. LIDOCAINE 4% CREA [Concomitant]
  13. LOSARTAN. [Concomitant]
     Active Substance: LOSARTAN
  14. SENIOR MULTIPLE VITAMIN [Concomitant]
  15. MAGNESIUM OXIDE. [Concomitant]
     Active Substance: MAGNESIUM OXIDE
  16. NEFEDIPINE [Concomitant]
  17. PANTOPRAZOLE [Concomitant]
     Active Substance: PANTOPRAZOLE
  18. ULTICARE MICRO PEN NEEDLES 32GX4MM [Concomitant]

REACTIONS (4)
  - Application site irritation [None]
  - Dry skin [None]
  - Application site erythema [None]
  - Application site pain [None]

NARRATIVE: CASE EVENT DATE: 20210214
